FAERS Safety Report 14473074 (Version 2)
Quarter: 2018Q1

REPORT INFORMATION
  Report Type: Spontaneous
  Country: US (occurrence: US)
  Receive Date: 20180201
  Receipt Date: 20180213
  Transmission Date: 20180509
  Serious: Yes (Life-Threatening, Hospitalization, Other)
  Sender: FDA-Public Use
  Company Number: US-ACCORD-063007

PATIENT
  Age: 54 Year
  Sex: Female

DRUGS (4)
  1. DOXAZOSIN [Suspect]
     Active Substance: DOXAZOSIN\DOXAZOSIN MESYLATE
     Dosage: STRENGTH: 8 MG
  2. AMLODIPINE [Suspect]
     Active Substance: AMLODIPINE BESYLATE
     Dosage: STRENGTH: 10 MG
  3. HYDROCHLOROTHIAZIDE. [Suspect]
     Active Substance: HYDROCHLOROTHIAZIDE
     Dosage: STRENGTH: 12.5 MG
  4. ATENOLOL/ATENOLOL HYDROCHLORIDE [Suspect]
     Active Substance: ATENOLOL HYDROCHLORIDE
     Dosage: STRENGTH:  50 MG

REACTIONS (13)
  - Haemoglobin decreased [None]
  - Haemodynamic instability [Recovering/Resolving]
  - Overdose [Unknown]
  - Sinus bradycardia [Recovering/Resolving]
  - Pulmonary oedema [None]
  - Dialysis [None]
  - Intentional overdose [None]
  - Hypoglycaemia [None]
  - Somnolence [Recovering/Resolving]
  - Hypocalcaemia [Unknown]
  - Abdominal pain [Unknown]
  - Suicidal ideation [Unknown]
  - Hypokalaemia [Unknown]
